FAERS Safety Report 23614186 (Version 1)
Quarter: 2024Q1

REPORT INFORMATION
  Report Type: Report from Study
  Country: US (occurrence: US)
  Receive Date: 20240310
  Receipt Date: 20240310
  Transmission Date: 20240409
  Serious: No
  Sender: FDA-Public Use
  Company Number: US-ACADIA PHARMACEUTICALS INC.-ACA-2024-PIM-000769

PATIENT
  Age: 85 Year
  Sex: Female

DRUGS (12)
  1. NUPLAZID [Suspect]
     Active Substance: PIMAVANSERIN TARTRATE
     Indication: Parkinson^s disease psychosis
     Dosage: 34 MILLIGRAM, QD
     Route: 048
     Dates: start: 20220615
  2. CARBIDOPA\LEVODOPA [Concomitant]
     Active Substance: CARBIDOPA\LEVODOPA
  3. PRAMIPEXOLE [Concomitant]
     Active Substance: PRAMIPEXOLE\PRAMIPEXOLE DIHYDROCHLORIDE
  4. FERROUS SULFATE [Concomitant]
     Active Substance: FERROUS SULFATE
  5. POTASSIUM CHLORIDE [Concomitant]
     Active Substance: POTASSIUM CHLORIDE
  6. FUROSEMIDE [Concomitant]
     Active Substance: FUROSEMIDE
  7. VITAMINS NOS [Concomitant]
     Active Substance: VITAMINS
  8. VITAMIN D3 [Concomitant]
     Active Substance: CHOLECALCIFEROL
  9. LOSARTAN [Concomitant]
     Active Substance: LOSARTAN
  10. MAGNESIUM [Concomitant]
     Active Substance: MAGNESIUM
  11. GABAPENTIN [Concomitant]
     Active Substance: GABAPENTIN
  12. PREGABALIN [Concomitant]
     Active Substance: PREGABALIN

REACTIONS (1)
  - Urinary tract infection [Unknown]

NARRATIVE: CASE EVENT DATE: 20240129
